FAERS Safety Report 4608378-0 (Version None)
Quarter: 2005Q1

REPORT INFORMATION
  Report Type: 
  Country: None (occurrence: None)
  Receive Date: 20050311
  Receipt Date: 20050311
  Transmission Date: 20050727
  Serious: Yes (Other)
  Sender: FDA-Public Use
  Company Number: None

PATIENT
  Sex: Female
  Weight: 48.9885 kg

DRUGS (1)
  1. FLUPHENAZINE [Suspect]
     Indication: SCHIZOAFFECTIVE DISORDER
     Dosage: 5 MG PO BID
     Route: 048
     Dates: start: 20050128, end: 20050214

REACTIONS (3)
  - COGWHEEL RIGIDITY [None]
  - MOVEMENT DISORDER [None]
  - MUSCULOSKELETAL STIFFNESS [None]
